FAERS Safety Report 8511608-6 (Version None)
Quarter: 2012Q3

REPORT INFORMATION
  Report Type: 
  Country: None (occurrence: None)
  Receive Date: 20120716
  Receipt Date: 20120710
  Transmission Date: 20120928
  Serious: No
  Sender: FDA-Public Use
  Company Number: PHEH2012US013743

PATIENT
  Sex: Male

DRUGS (7)
  1. PROPRANOLOL [Concomitant]
     Dosage: 20 MG, UNK
  2. ALLOPURINOL [Concomitant]
     Dosage: 100 MG, UNK
  3. ROPINIROLE [Concomitant]
     Dosage: 0.5 MG, UNK
  4. SIMVASTATIN [Concomitant]
     Dosage: 10 MG, UNK
  5. ALPRAZOLAM [Concomitant]
     Dosage: 0.25 MG, UNK
  6. TASIGNA [Suspect]
     Dosage: 400 MG, BID
     Route: 048
  7. CARISOPRODOL [Concomitant]
     Dosage: 250 MG, UNK

REACTIONS (6)
  - DRUG INTOLERANCE [None]
  - PAIN [None]
  - SKIN DISORDER [None]
  - PILOERECTION [None]
  - FATIGUE [None]
  - RASH [None]
